FAERS Safety Report 16174270 (Version 2)
Quarter: 2020Q1

REPORT INFORMATION
  Report Type: Report from Study
  Country: GB (occurrence: GB)
  Receive Date: 20190409
  Receipt Date: 20200206
  Transmission Date: 20200409
  Serious: Yes (Other)
  Sender: FDA-Public Use
  Company Number: PHHY2015GB006481

PATIENT
  Age: 47 Year
  Sex: Female

DRUGS (3)
  1. NAPROXEN. [Concomitant]
     Active Substance: NAPROXEN
     Indication: PAIN
     Dosage: UNK
     Route: 065
     Dates: start: 20150618, end: 20190211
  2. METHYLPREDNISOLONE. [Concomitant]
     Active Substance: METHYLPREDNISOLONE
     Indication: MULTIPLE SCLEROSIS RELAPSE
     Dosage: UNK
     Route: 065
     Dates: start: 20150618, end: 20150622
  3. GILENYA [Suspect]
     Active Substance: FINGOLIMOD HYDROCHLORIDE
     Indication: MULTIPLE SCLEROSIS
     Dosage: UNK, QD
     Route: 048
     Dates: start: 20140130

REACTIONS (22)
  - Leukopenia [Unknown]
  - Neutropenia [Unknown]
  - Diarrhoea [Unknown]
  - Dizziness [Recovered/Resolved]
  - Pyrexia [Recovered/Resolved]
  - Temporomandibular joint syndrome [Recovered/Resolved]
  - Alopecia [Unknown]
  - Alanine aminotransferase increased [Unknown]
  - Vaccination complication [Not Recovered/Not Resolved]
  - Stress urinary incontinence [Recovered/Resolved]
  - Lymphopenia [Unknown]
  - Nephrolithiasis [Recovered/Resolved]
  - Mobility decreased [Unknown]
  - Food poisoning [Unknown]
  - Blood pressure increased [Unknown]
  - Arthralgia [Unknown]
  - Vaginal cyst [Unknown]
  - Depressed mood [Recovered/Resolved]
  - Depressed mood [Unknown]
  - Sleep disorder [Recovered/Resolved]
  - Skin papilloma [Unknown]
  - Urinary tract infection [Unknown]

NARRATIVE: CASE EVENT DATE: 20141007
